FAERS Safety Report 9131063 (Version 2)
Quarter: 2013Q2

REPORT INFORMATION
  Report Type: Spontaneous
  Country: US (occurrence: US)
  Receive Date: 20130301
  Receipt Date: 20130604
  Transmission Date: 20140414
  Serious: Yes (Other)
  Sender: FDA-Public Use
  Company Number: US-JNJFOC-20130214895

PATIENT
  Age: 67 Year
  Sex: Female

DRUGS (3)
  1. LEVAQUIN [Suspect]
     Indication: CELLULITIS
     Dosage: 5 DAY PACKET
     Route: 048
  2. LEVAQUIN [Suspect]
     Indication: SKIN INFECTION
     Dosage: 5 DAY PACKET
     Route: 048
  3. LEVAQUIN [Suspect]
     Indication: LOCALISED INFECTION
     Dosage: 5 DAY PACKET
     Route: 048

REACTIONS (5)
  - Tendon rupture [Unknown]
  - Tenosynovitis [Unknown]
  - Ataxia [Not Recovered/Not Resolved]
  - Weight decreased [Unknown]
  - Lip blister [Unknown]
